FAERS Safety Report 8159098 (Version 2)
Quarter: 2012Q4

REPORT INFORMATION
  Report Type: 
  Country: US (occurrence: US)
  Receive Date: 20110927
  Receipt Date: 20121015
  Transmission Date: 20130627
  Serious: Yes (Congenital Anomaly)
  Sender: FDA-Public Use
  Company Number: US-ELI_LILLY_AND_COMPANY-US201109004199

PATIENT
  Sex: Female

DRUGS (2)
  1. PROZAC [Suspect]
     Route: 064
  2. PROZAC [Suspect]
     Route: 064

REACTIONS (2)
  - Aortic stenosis [Unknown]
  - Foetal exposure during pregnancy [Unknown]
